FAERS Safety Report 7953123-4 (Version None)
Quarter: 2011Q4

REPORT INFORMATION
  Report Type: 
  Country: None (occurrence: None)
  Receive Date: 20111201
  Receipt Date: 20111122
  Transmission Date: 20120403
  Serious: Yes (Hospitalization, Other)
  Sender: FDA-Public Use
  Company Number: US-ASTRAZENECA-2011SE38509

PATIENT
  Age: 62 Year
  Sex: Male

DRUGS (6)
  1. CARDURA [Concomitant]
  2. MOBIC [Concomitant]
  3. NEXIUM [Suspect]
     Route: 048
     Dates: start: 20110225
  4. NEXIUM [Suspect]
     Route: 042
     Dates: start: 20110201, end: 20110225
  5. MULTI-VITAMINS [Concomitant]
  6. CALCIUM CARBONATE [Concomitant]

REACTIONS (6)
  - ADHESION [None]
  - GASTROOESOPHAGEAL REFLUX DISEASE [None]
  - HYPOKALAEMIA [None]
  - ATELECTASIS [None]
  - HIATUS HERNIA [None]
  - SMALL INTESTINAL OBSTRUCTION [None]
